FAERS Safety Report 7559922-5 (Version None)
Quarter: 2011Q2

REPORT INFORMATION
  Report Type: 
  Country: None (occurrence: None)
  Receive Date: 20110617
  Receipt Date: 20110617
  Transmission Date: 20111010
  Serious: No
  Sender: FDA-Public Use
  Company Number: None

PATIENT
  Sex: Male
  Weight: 16 kg

DRUGS (2)
  1. PANCREATIC ENZYMES [Suspect]
     Indication: CYSTIC FIBROSIS
     Dosage: GENERIC ENZYMES 5,000 U WITH MEALS + SNACK 4-6 TIMES DAILY ORAL
     Route: 048
     Dates: start: 20101001, end: 20110501
  2. PANCREATIC ENZYMES [Suspect]
     Indication: MALABSORPTION
     Dosage: GENERIC ENZYMES 5,000 U WITH MEALS + SNACK 4-6 TIMES DAILY ORAL
     Route: 048
     Dates: start: 20101001, end: 20110501

REACTIONS (3)
  - WEIGHT DECREASED [None]
  - FAILURE TO THRIVE [None]
  - PULMONARY FUNCTION TEST DECREASED [None]
